FAERS Safety Report 15309081 (Version 1)
Quarter: 2018Q3

REPORT INFORMATION
  Report Type: Spontaneous
  Country: NL (occurrence: NL)
  Receive Date: 20180823
  Receipt Date: 20180823
  Transmission Date: 20181010
  Serious: Yes (Hospitalization)
  Sender: FDA-Public Use
  Company Number: NL-BIOGEN-2018BI00622486

PATIENT
  Age: 75 Year
  Sex: Female

DRUGS (2)
  1. FAMPYRA [Suspect]
     Active Substance: DALFAMPRIDINE
     Indication: GAIT DISTURBANCE
     Route: 048
     Dates: start: 2017, end: 2017
  2. FAMPYRA [Suspect]
     Active Substance: DALFAMPRIDINE
     Route: 048
     Dates: start: 201808

REACTIONS (4)
  - Primary progressive multiple sclerosis [Not Recovered/Not Resolved]
  - Oedema [Unknown]
  - Fibrin D dimer increased [Not Recovered/Not Resolved]
  - Deep vein thrombosis [Unknown]
